FAERS Safety Report 12705297 (Version 1)
Quarter: 2016Q3

REPORT INFORMATION
  Report Type: Spontaneous
  Country: US (occurrence: US)
  Receive Date: 20160831
  Receipt Date: 20160831
  Transmission Date: 20161109
  Serious: Yes (Hospitalization)
  Sender: FDA-Public Use
  Company Number: US-BEH-2016073128

PATIENT
  Age: 67 Year
  Sex: Female
  Weight: 79.4 kg

DRUGS (26)
  1. PEPCID                             /00305201/ [Concomitant]
     Active Substance: ALUMINUM HYDROXIDE\MAGNESIUM CARBONATE
  2. CEFTRIAXONE. [Concomitant]
     Active Substance: CEFTRIAXONE
  3. LOVASTATIN. [Concomitant]
     Active Substance: LOVASTATIN
  4. ASTELIN                            /00085801/ [Concomitant]
     Active Substance: AZELASTINE HYDROCHLORIDE
  5. PLAVIX [Concomitant]
     Active Substance: CLOPIDOGREL BISULFATE
  6. TOBRAMYCIN. [Concomitant]
     Active Substance: TOBRAMYCIN
  7. FLONASE [Concomitant]
     Active Substance: FLUTICASONE PROPIONATE
  8. HIZENTRA [Suspect]
     Active Substance: HUMAN IMMUNOGLOBULIN G
     Indication: IMMUNODEFICIENCY COMMON VARIABLE
     Dosage: 3 G, QW
     Route: 058
     Dates: start: 20101103
  9. HIZENTRA [Suspect]
     Active Substance: HUMAN IMMUNOGLOBULIN G
     Dosage: 3 G, QW
     Route: 058
  10. NOVOLOG [Concomitant]
     Active Substance: INSULIN ASPART
  11. ATROVENT [Concomitant]
     Active Substance: IPRATROPIUM BROMIDE
  12. DIPHENHYDRAMINE. [Concomitant]
     Active Substance: DIPHENHYDRAMINE
  13. EPIPEN [Concomitant]
     Active Substance: EPINEPHRINE
  14. CIPRO [Concomitant]
     Active Substance: CIPROFLOXACIN HYDROCHLORIDE
  15. DILTIAZEM. [Concomitant]
     Active Substance: DILTIAZEM
  16. ASPIRIN. [Concomitant]
     Active Substance: ASPIRIN
  17. LMX                                /00033401/ [Concomitant]
  18. POTASSIUM CL [Concomitant]
     Active Substance: POTASSIUM CHLORIDE
  19. DUONEB [Concomitant]
     Active Substance: ALBUTEROL SULFATE\IPRATROPIUM BROMIDE
  20. MUCO-FEN DM [Concomitant]
  21. NITROGLYCERIN. [Concomitant]
     Active Substance: NITROGLYCERIN
  22. LEVAQUIN [Concomitant]
     Active Substance: LEVOFLOXACIN
  23. RESTORIL [Concomitant]
     Active Substance: TEMAZEPAM
  24. TORSEMIDE. [Concomitant]
     Active Substance: TORSEMIDE
  25. IMDUR [Concomitant]
     Active Substance: ISOSORBIDE MONONITRATE
  26. SALINE                             /00075401/ [Concomitant]
     Active Substance: SODIUM CHLORIDE

REACTIONS (2)
  - Myocardial infarction [Recovered/Resolved]
  - Myocardial infarction [Recovered/Resolved]

NARRATIVE: CASE EVENT DATE: 20160809
